FAERS Safety Report 5463863-7 (Version None)
Quarter: 2007Q3

REPORT INFORMATION
  Report Type: 
  Country: None (occurrence: None)
  Receive Date: 20070817
  Receipt Date: 20060811
  Transmission Date: 20080115
  Serious: Yes (Hospitalization)
  Sender: FDA-Public Use
  Company Number: 14388

PATIENT
  Age: 67 Year
  Sex: Male
  Weight: 89.3586 kg

DRUGS (13)
  1. OXALIPLATIN [Suspect]
     Indication: COLON CANCER STAGE III
     Dosage: 170 MG FORTNIGHTLY IV
     Route: 042
     Dates: start: 20060313, end: 20060425
  2. OXALIPLATIN [Suspect]
     Indication: COLON CANCER STAGE III
     Dosage: 127 MG PER_CYCLE IV
     Route: 042
     Dates: start: 20060426, end: 20060521
  3. OXALIPLATIN [Suspect]
     Indication: COLON CANCER STAGE III
     Dosage: 88 MG PER_CYCLE IV
     Route: 042
     Dates: start: 20060522, end: 20060529
  4. OXALIPLATIN [Suspect]
     Indication: COLON CANCER STAGE III
     Dosage: 100 MG PER_CYCLE IV
     Route: 042
     Dates: start: 20060530
  5. FLUOROURACIL [Suspect]
     Indication: COLON CANCER STAGE III
     Dosage: 400 UNITS PER_CYCLE IV
     Route: 042
     Dates: start: 20060313
  6. FLUOROURACIL [Suspect]
     Indication: COLON CANCER STAGE III
     Dosage: 800 UNITS PER_CYCLE IV
     Route: 042
     Dates: start: 20060313
  7. FLUOROURACIL [Suspect]
     Indication: COLON CANCER STAGE III
     Dosage: 1200 UNITS FORTNIGHTLY IV
     Route: 042
     Dates: start: 20060313
  8. LEUCOVORIN [Suspect]
     Indication: COLON CANCER STAGE III
     Dosage: 400 UNITS FORTNIGHTLY IV
     Route: 042
     Dates: start: 20060313
  9. DECADRON [Concomitant]
  10. ZOFRAN [Concomitant]
  11. SYNTHROID [Concomitant]
  12. ZOCOR [Concomitant]
  13. VITAMIN B AND E [Concomitant]

REACTIONS (1)
  - DIARRHOEA [None]
